FAERS Safety Report 10351321 (Version 2)
Quarter: 2015Q4

REPORT INFORMATION
  Report Type: Spontaneous
  Country: US (occurrence: US)
  Receive Date: 20140730
  Receipt Date: 20151221
  Transmission Date: 20160304
  Serious: Yes (Hospitalization, Other)
  Sender: FDA-Public Use
  Company Number: US-BAYER-2014-112870

PATIENT
  Age: 26 Year
  Sex: Female

DRUGS (3)
  1. YASMIN [Suspect]
     Active Substance: DROSPIRENONE\ETHINYL ESTRADIOL
  2. AMLODIPINE [Concomitant]
     Active Substance: AMLODIPINE BESYLATE
  3. CIPROFLOXACIN. [Concomitant]
     Active Substance: CIPROFLOXACIN

REACTIONS (8)
  - Intracranial aneurysm [None]
  - Cerebrovascular accident [None]
  - Seizure [None]
  - Emotional distress [None]
  - Thrombosis [None]
  - Embolism arterial [None]
  - Intracranial venous sinus thrombosis [None]
  - Injury [None]

NARRATIVE: CASE EVENT DATE: 2005
